FAERS Safety Report 8794109 (Version 1)
Quarter: 2012Q4

REPORT INFORMATION
  Report Type: 
  Country: US (occurrence: US)
  Receive Date: 20120918
  Receipt Date: 20120918
  Transmission Date: 20130627
  Serious: No
  Sender: FDA-Public Use
  Company Number: US-ROXANE LABORATORIES, INC.-2012-RO-01854RO

PATIENT
  Age: 69 Year
  Sex: Male

DRUGS (1)
  1. LOSARTAN POTASSIUM W/HYDROCHLOROTHIAZIDE [Suspect]
     Indication: HYPERTENSION
     Route: 048
     Dates: start: 20120719, end: 20120723

REACTIONS (3)
  - Dizziness [Recovered/Resolved]
  - Arthralgia [Recovered/Resolved]
  - Urinary retention [Recovered/Resolved]
